FAERS Safety Report 5002284-8 (Version None)
Quarter: 2006Q2

REPORT INFORMATION
  Report Type: 
  Country: None (occurrence: None)
  Receive Date: 20060512
  Receipt Date: 20060428
  Transmission Date: 20061013
  Serious: Yes (Other)
  Sender: FDA-Public Use
  Company Number: GXKR2006RO02424

PATIENT

DRUGS (1)
  1. AMIODARONE (NGX)(AMIODARONE) UNKNOWN [Suspect]

REACTIONS (3)
  - KERATOPATHY [None]
  - MACULOPATHY [None]
  - OCULAR TOXICITY [None]
